FAERS Safety Report 5162939-1 (Version None)
Quarter: 2006Q4

REPORT INFORMATION
  Report Type: 
  Country: None (occurrence: None)
  Receive Date: 20061201
  Receipt Date: 20061121
  Transmission Date: 20070319
  Serious: Yes (Hospitalization)
  Sender: FDA-Public Use
  Company Number: DE-ROCHE-472391

PATIENT
  Age: 70 Year
  Sex: Male
  Weight: 90 kg

DRUGS (2)
  1. GANCICLOVIR SODIUM [Suspect]
     Indication: GLIOMA
     Dosage: MORNING DOSE WAS SKIPPED ON 27 OCTOBER 2006
     Route: 042
     Dates: start: 20061023, end: 20061106
  2. CEREPRO [Suspect]
     Indication: GLIOMA
     Dosage: SINGLE DOSE
     Route: 042
     Dates: start: 20061018, end: 20061018

REACTIONS (3)
  - EPILEPSY [None]
  - HYPONATRAEMIA [None]
  - POST PROCEDURAL COMPLICATION [None]
